FAERS Safety Report 14315542 (Version 2)
Quarter: 2018Q4

REPORT INFORMATION
  Report Type: Spontaneous
  Country: US (occurrence: US)
  Receive Date: 20171221
  Receipt Date: 20181219
  Transmission Date: 20190204
  Serious: No
  Sender: FDA-Public Use
  Company Number: US-IMPAX LABORATORIES, INC-2017-IPXL-01685

PATIENT
  Age: 86 Year
  Sex: Female
  Weight: 82 kg

DRUGS (1)
  1. COLESTIPOL HYDROCHLORIDE. [Suspect]
     Active Substance: COLESTIPOL HYDROCHLORIDE
     Indication: DIARRHOEA
     Dosage: 1G, 1 DF, BID
     Route: 048
     Dates: start: 201704, end: 20170524

REACTIONS (5)
  - Diarrhoea [Recovered/Resolved]
  - Flatulence [Recovered/Resolved]
  - Product friable [Unknown]
  - Abdominal discomfort [Recovered/Resolved]
  - Abdominal pain [Recovered/Resolved]

NARRATIVE: CASE EVENT DATE: 201704
